FAERS Safety Report 9361956 (Version 1)
Quarter: 2013Q2

REPORT INFORMATION
  Report Type: Other
  Country: GB (occurrence: GB)
  Receive Date: 20130621
  Receipt Date: 20130621
  Transmission Date: 20140414
  Serious: Yes (Other)
  Sender: FDA-Public Use
  Company Number: GB-BRISTOL-MYERS SQUIBB COMPANY-19034263

PATIENT
  Age: 71 Year
  Sex: Female

DRUGS (4)
  1. MITOMYCIN-C [Suspect]
     Indication: TRABECULECTOMY
     Dosage: INJ?1DF:0.4MG/ML
     Route: 031
     Dates: start: 201001, end: 201001
  2. COSOPT [Suspect]
     Indication: GLAUCOMA
     Route: 061
  3. XALATAN [Suspect]
     Indication: GLAUCOMA
     Dosage: EXTRA FORMULATION
     Route: 061
  4. AMITRIPTYLINE [Concomitant]

REACTIONS (2)
  - Choroidal detachment [Unknown]
  - Off label use [Unknown]
